FAERS Safety Report 9223117 (Version 1)
Quarter: 2013Q1

REPORT INFORMATION
  Report Type: Spontaneous
  Country: US (occurrence: None)
  Receive Date: 20120914
  Receipt Date: 20120914
  Transmission Date: 20140127
  Serious: Yes (Hospitalization)
  Sender: FDA-Public Use
  Company Number: JPI-P-017532

PATIENT
  Age: 53 Year
  Sex: Male

DRUGS (3)
  1. XYREM (500 MILLIGRAM/MILLILITERS, SOLUTION) (SODIUM OXYBATE) [Suspect]
     Indication: CATAPLEXY
     Dosage: 6 GM (3 GM,2 IN 1 D)
     Route: 048
     Dates: start: 20110825, end: 20110928
  2. HYDROCODONE [Concomitant]
  3. UNSPECIFIED MEDICATION FOR HIGH BLOOD PRESSURE [Concomitant]

REACTIONS (5)
  - Depressed level of consciousness [None]
  - Feeling abnormal [None]
  - Amnesia [None]
  - Fall [None]
  - Excoriation [None]
